FAERS Safety Report 6605145-3 (Version None)
Quarter: 2010Q1

REPORT INFORMATION
  Report Type: 
  Country: None (occurrence: None)
  Receive Date: 20100226
  Receipt Date: 20100219
  Transmission Date: 20100710
  Serious: Yes (Other)
  Sender: FDA-Public Use
  Company Number: MX-ELI_LILLY_AND_COMPANY-MX201002005774

PATIENT
  Age: 73 Year
  Sex: Female
  Weight: 62 kg

DRUGS (3)
  1. HUMALOG MIX 75/25 [Suspect]
     Indication: DIABETES MELLITUS
     Dosage: 25 IU, DAILY (1/D)
     Route: 058
     Dates: start: 20100125
  2. NOVOTIRAL [Concomitant]
     Dosage: UNK, UNKNOWN
     Route: 065
  3. IRON [Concomitant]
     Dosage: UNK, UNKNOWN
     Route: 065
     Dates: start: 20100201

REACTIONS (1)
  - LYMPHOMA [None]
